FAERS Safety Report 14901535 (Version 2)
Quarter: 2018Q4

REPORT INFORMATION
  Report Type: Spontaneous
  Country: PL (occurrence: PL)
  Receive Date: 20180516
  Receipt Date: 20181030
  Transmission Date: 20190204
  Serious: Yes (Hospitalization)
  Sender: FDA-Public Use
  Company Number: PL-PFIZER INC-2018171088

PATIENT
  Age: 2 Year
  Sex: Male

DRUGS (19)
  1. HYDROXYZINE HYDROCHLORIDE. [Suspect]
     Active Substance: HYDROXYZINE HYDROCHLORIDE
     Indication: SUPERINFECTION BACTERIAL
  2. CLOTRIMAZOLE. [Suspect]
     Active Substance: CLOTRIMAZOLE
     Indication: SUPERINFECTION BACTERIAL
  3. BETAMETHASONE. [Suspect]
     Active Substance: BETAMETHASONE
     Indication: SUPERINFECTION VIRAL
  4. HYDROXYZINE HYDROCHLORIDE. [Suspect]
     Active Substance: HYDROXYZINE HYDROCHLORIDE
     Indication: DERMATITIS ATOPIC
     Dosage: UNK
     Route: 048
  5. HYDROXYZINE HYDROCHLORIDE. [Suspect]
     Active Substance: HYDROXYZINE HYDROCHLORIDE
     Indication: SUPERINFECTION VIRAL
  6. CLOTRIMAZOLE. [Suspect]
     Active Substance: CLOTRIMAZOLE
     Indication: SUPERINFECTION VIRAL
  7. MOMETASONE [Suspect]
     Active Substance: MOMETASONE
     Indication: SUPERINFECTION BACTERIAL
  8. RUPATADINE [Suspect]
     Active Substance: RUPATADINE
     Indication: SUPERINFECTION BACTERIAL
  9. FLUCONAZOLE. [Suspect]
     Active Substance: FLUCONAZOLE
     Indication: SUPERINFECTION BACTERIAL
  10. FLUCONAZOLE. [Suspect]
     Active Substance: FLUCONAZOLE
     Indication: SUPERINFECTION VIRAL
  11. FLUCONAZOLE. [Suspect]
     Active Substance: FLUCONAZOLE
     Indication: DERMATITIS ATOPIC
     Dosage: UNK
     Route: 048
  12. GENTAMICIN SULFATE. [Suspect]
     Active Substance: GENTAMICIN SULFATE
     Dosage: UNK
     Route: 061
  13. MOMETASONE [Suspect]
     Active Substance: MOMETASONE
     Indication: DERMATITIS ATOPIC
     Dosage: UNK
     Route: 061
  14. BETAMETHASONE. [Suspect]
     Active Substance: BETAMETHASONE
     Indication: DERMATITIS ATOPIC
     Dosage: UNK
     Route: 061
  15. BETAMETHASONE. [Suspect]
     Active Substance: BETAMETHASONE
     Indication: SUPERINFECTION BACTERIAL
  16. CLOTRIMAZOLE. [Suspect]
     Active Substance: CLOTRIMAZOLE
     Indication: DERMATITIS ATOPIC
     Dosage: UNK
     Route: 061
  17. RUPATADINE [Suspect]
     Active Substance: RUPATADINE
     Indication: DERMATITIS ATOPIC
     Dosage: UNK
     Route: 048
  18. RUPATADINE [Suspect]
     Active Substance: RUPATADINE
     Indication: SUPERINFECTION VIRAL
  19. MOMETASONE [Suspect]
     Active Substance: MOMETASONE
     Indication: SUPERINFECTION VIRAL

REACTIONS (4)
  - Disease progression [Recovering/Resolving]
  - Vomiting [Recovered/Resolved]
  - Drug ineffective [Unknown]
  - Pyrexia [Recovered/Resolved]
